FAERS Safety Report 12644455 (Version 3)
Quarter: 2016Q3

REPORT INFORMATION
  Report Type: Spontaneous
  Country: US (occurrence: US)
  Receive Date: 20160811
  Receipt Date: 20160921
  Transmission Date: 20161109
  Serious: Yes (Hospitalization, Other)
  Sender: FDA-Public Use
  Company Number: US-PFIZER INC-2016372321

PATIENT
  Age: 57 Year
  Sex: Male
  Weight: 112.49 kg

DRUGS (8)
  1. LOPRESSOR [Concomitant]
     Active Substance: METOPROLOL TARTRATE
     Indication: HYPERTENSION
     Dosage: 100 MG, 2X/DAY
  2. FLUDROCORTISONE [Concomitant]
     Active Substance: FLUDROCORTISONE
     Indication: ADRENAL DISORDER
     Dosage: 0.1MG PILL ONE A DAY
     Route: 048
     Dates: start: 2005
  3. LISINOPRIL. [Concomitant]
     Active Substance: LISINOPRIL
     Indication: HYPERTENSION
     Dosage: 5MG ,1 TABLET ONCE A DAY
     Route: 048
     Dates: start: 201602
  4. HYDRALAZINE [Concomitant]
     Active Substance: HYDRALAZINE HYDROCHLORIDE
     Indication: HYPERTENSION
     Dosage: 50 MG, 1X/DAY
     Route: 048
     Dates: start: 201602
  5. PREDNISONE. [Concomitant]
     Active Substance: PREDNISONE
     Indication: ADRENAL DISORDER
     Dosage: 1 TABLET IN A HALF TO MAKE 7MG ONE TIME A DAY
     Route: 048
     Dates: start: 2005
  6. LABETALOL [Concomitant]
     Active Substance: LABETALOL\LABETALOL HYDROCHLORIDE
     Indication: HYPERTENSION
     Dosage: 200 MG, 2X/DAY
     Route: 048
     Dates: start: 201602
  7. LISINOPRIL. [Concomitant]
     Active Substance: LISINOPRIL
     Dosage: 10 MG, 1X/DAY
  8. INLYTA [Suspect]
     Active Substance: AXITINIB
     Indication: RENAL CELL CARCINOMA
     Dosage: 5 MG, 2X/DAY
     Route: 048
     Dates: start: 20160107

REACTIONS (16)
  - Dry mouth [Not Recovered/Not Resolved]
  - Chest pain [Unknown]
  - Diarrhoea [Recovering/Resolving]
  - Blood glucose increased [Not Recovered/Not Resolved]
  - Skin discolouration [Unknown]
  - Skin induration [Recovered/Resolved]
  - Paraesthesia [Recovering/Resolving]
  - Erythema [Not Recovered/Not Resolved]
  - Burning sensation [Recovering/Resolving]
  - Skin discolouration [Recovering/Resolving]
  - Pain in extremity [Not Recovered/Not Resolved]
  - Hair colour changes [Unknown]
  - Blood pressure increased [Not Recovered/Not Resolved]
  - Dry skin [Recovered/Resolved]
  - Oral discomfort [Not Recovered/Not Resolved]
  - Tongue discomfort [Recovering/Resolving]

NARRATIVE: CASE EVENT DATE: 2016
